FAERS Safety Report 6289765-4 (Version None)
Quarter: 2009Q3

REPORT INFORMATION
  Report Type: 
  Country: None (occurrence: None)
  Receive Date: 20090730
  Receipt Date: 20080715
  Transmission Date: 20100115
  Serious: No
  Sender: FDA-Public Use
  Company Number: US-BRISTOL-MYERS SQUIBB COMPANY-14264493

PATIENT
  Age: 65 Year
  Sex: Male
  Weight: 100 kg

DRUGS (3)
  1. WARFARIN SODIUM [Suspect]
     Indication: THROMBOSIS
     Dosage: 1 DOSAGEFORM=5MG(ONE TAB) DAILY ALTERNATING WITH HALF A TAB (2.5 MG) DAILY.FORM=TABS, STRENGTH 5 MG
     Route: 048
     Dates: start: 20080501
  2. COUMADIN [Suspect]
     Dates: start: 20080401
  3. ANTACID TAB [Concomitant]

REACTIONS (3)
  - COUGH [None]
  - RHINORRHOEA [None]
  - UPPER RESPIRATORY TRACT INFECTION [None]
